FAERS Safety Report 5194117-4 (Version None)
Quarter: 2006Q4

REPORT INFORMATION
  Report Type: 
  Country: None (occurrence: None)
  Receive Date: 20061222
  Receipt Date: 20061212
  Transmission Date: 20070319
  Serious: Yes (Hospitalization)
  Sender: FDA-Public Use
  Company Number: 163-21880-06100476

PATIENT
  Age: 57 Year
  Sex: Male
  Weight: 93.8946 kg

DRUGS (14)
  1. REVLIMID [Suspect]
     Indication: MULTIPLE MYELOMA
     Dosage: SEE IMAGE
     Route: 048
     Dates: start: 20060908, end: 20060901
  2. REVLIMID [Suspect]
     Indication: MULTIPLE MYELOMA
     Dosage: SEE IMAGE
     Route: 048
     Dates: start: 20061008, end: 20061105
  3. DECADRON [Suspect]
     Indication: DRUG USE FOR UNKNOWN INDICATION
     Dosage: 40 MG, QD FOUR DAYS ON, FOUR DAYS OFF, ORAL
     Route: 048
     Dates: start: 20061016
  4. PREDNISONE TAB [Concomitant]
  5. COMBIVENT [Concomitant]
  6. SPIRIVA [Concomitant]
  7. ACTIQ (SUGAR-FREE) [Concomitant]
  8. OXYCONTIN (OXYCODONE HYDROCHLORIDE) (80 MILLIGRAM, TABLETS) [Concomitant]
  9. DILAUDID (HYDROMORPHONE HYDROCHLORIDE) (8 MILLIGRAM) [Concomitant]
  10. ALBUTEROL MDI (SALBUTAMOL) [Concomitant]
  11. COUMADIN [Concomitant]
  12. AREDIA [Concomitant]
  13. ANDRODERM (TESTOSTERONE) (POULTICE OR PATCH) [Concomitant]
  14. BACLOFEN [Concomitant]

REACTIONS (8)
  - BLOOD ALBUMIN DECREASED [None]
  - CHRONIC OBSTRUCTIVE PULMONARY DISEASE [None]
  - CONDITION AGGRAVATED [None]
  - ENCEPHALOPATHY [None]
  - FATIGUE [None]
  - HEPATITIS C [None]
  - PANCYTOPENIA [None]
  - PNEUMONIA [None]
